FAERS Safety Report 19465301 (Version 4)
Quarter: 2021Q3

REPORT INFORMATION
  Report Type: Spontaneous
  Country: AU (occurrence: AU)
  Receive Date: 20210624
  Receipt Date: 20210917
  Transmission Date: 20211014
  Serious: Yes (Other)
  Sender: FDA-Public Use
  Company Number: AU-GLAXOSMITHKLINE-AU2021APC131796

PATIENT
  Age: 50 Year
  Sex: Female

DRUGS (7)
  1. PEPPER (PIPER NIGRUM) [Suspect]
     Active Substance: BLACK PEPPER\HERBALS
     Indication: PRODUCT USED FOR UNKNOWN INDICATION
     Dosage: UNK
  2. SERETIDE [Suspect]
     Active Substance: FLUTICASONE PROPIONATE\SALMETEROL XINAFOATE
     Indication: PRODUCT USED FOR UNKNOWN INDICATION
     Dosage: UNK
  3. NUROFEN [Suspect]
     Active Substance: IBUPROFEN
     Indication: PRODUCT USED FOR UNKNOWN INDICATION
     Dosage: UNK
  4. TURMERIC [Suspect]
     Active Substance: HERBALS\TURMERIC
     Indication: PRODUCT USED FOR UNKNOWN INDICATION
     Dosage: UNK
  5. SEA SALT [Suspect]
     Active Substance: SEA SALT
     Indication: PRODUCT USED FOR UNKNOWN INDICATION
     Dosage: UNK
  6. VENTOLIN [Suspect]
     Active Substance: ALBUTEROL SULFATE
     Indication: PRODUCT USED FOR UNKNOWN INDICATION
     Dosage: UNK
  7. GADOLINIUM [Suspect]
     Active Substance: GADOLINIUM
     Indication: PRODUCT USED FOR UNKNOWN INDICATION
     Dosage: UNK

REACTIONS (13)
  - Treatment noncompliance [Unknown]
  - Off label use [Unknown]
  - Choking sensation [Unknown]
  - Tension [Recovered/Resolved]
  - Anaphylactic reaction [Unknown]
  - Insomnia [Recovered/Resolved]
  - Throat tightness [Unknown]
  - Seizure [Recovered/Resolved]
  - Anxiety [Unknown]
  - Asthma [Unknown]
  - Dyspnoea [Unknown]
  - Cyanosis [Unknown]
  - Tremor [Recovered/Resolved]
